FAERS Safety Report 10141068 (Version 1)
Quarter: 2014Q2

REPORT INFORMATION
  Report Type: Spontaneous
  Country: US (occurrence: US)
  Receive Date: 20140429
  Receipt Date: 20140429
  Transmission Date: 20141212
  Serious: No
  Sender: FDA-Public Use
  Company Number: US-BAYER-2014-057038

PATIENT
  Age: 14 Year
  Sex: Female

DRUGS (1)
  1. SAFYRAL [Suspect]
     Dosage: UNK

REACTIONS (1)
  - Expired product administered [None]
